FAERS Safety Report 9036933 (Version 2)
Quarter: 2013Q1

REPORT INFORMATION
  Report Type: Spontaneous
  Country: CA (occurrence: None)
  Receive Date: 20130109
  Receipt Date: 20130115
  Transmission Date: 20140127
  Serious: Yes (Disabling)
  Sender: FDA-Public Use
  Company Number: 2013034378

PATIENT
  Sex: Female

DRUGS (11)
  1. HIZENTRA (IMMUNOGLOBULIN HUMAN NORMAL) [Suspect]
     Indication: HYPOGAMMAGLOBULINAEMIA
  2. NEXIUM (ESOMEPRAZOLE MAGNESIUM) [Concomitant]
  3. BISOPROLOL (BISOPROLOL) [Concomitant]
  4. HYDROCHLOROTHIAZIDE (HYDROCHLOROTHIAZIDE) [Concomitant]
  5. ESTRACE (ESTADIOL) [Concomitant]
  6. QUININE (QUININE) [Concomitant]
  7. FENOFIBRATE (FENOFIBRATE) (FENOFIBRATE) [Concomitant]
  8. LIPITOR (ATORVASTATIN CALCIUM) [Concomitant]
  9. ALPRAZOLAM (ALPRAZOLAM) [Concomitant]
  10. ASAPHEN (ACETYLSALICYLIC ACID) [Concomitant]
  11. ADVAIR (SERETIDE / 01420901) [Concomitant]

REACTIONS (5)
  - Infection [None]
  - Asthenia [None]
  - Fatigue [None]
  - Diarrhoea [None]
  - Pain in extremity [None]
